FAERS Safety Report 11559212 (Version 1)
Quarter: 2015Q3

REPORT INFORMATION
  Report Type: Spontaneous
  Country: US (occurrence: None)
  Receive Date: 20150925
  Receipt Date: 20150925
  Transmission Date: 20151125
  Serious: No
  Sender: FDA-Public Use
  Company Number: None

PATIENT
  Age: 68 Year
  Sex: Male
  Weight: 87.54 kg

DRUGS (2)
  1. VIAGRA [Suspect]
     Active Substance: SILDENAFIL CITRATE
  2. REVATIO [Suspect]
     Active Substance: SILDENAFIL CITRATE

REACTIONS (2)
  - Product quality issue [None]
  - Treatment failure [None]

NARRATIVE: CASE EVENT DATE: 20140730
